FAERS Safety Report 23061338 (Version 1)
Quarter: 2023Q4

REPORT INFORMATION
  Report Type: Report from Study
  Country: US (occurrence: US)
  Receive Date: 20231013
  Receipt Date: 20231013
  Transmission Date: 20240109
  Serious: No
  Sender: FDA-Public Use
  Company Number: US-002147023-NVSC2023US217897

PATIENT
  Sex: Male

DRUGS (4)
  1. GABAPENTIN [Suspect]
     Active Substance: GABAPENTIN
     Indication: Ankylosing spondylitis
     Dosage: UNK
     Route: 065
     Dates: start: 201707
  2. GABAPENTIN [Suspect]
     Active Substance: GABAPENTIN
     Indication: Post herpetic neuralgia
  3. COSENTYX [Suspect]
     Active Substance: SECUKINUMAB
     Indication: Ankylosing spondylitis
     Dosage: UNK
     Route: 065
     Dates: start: 202202
  4. COSENTYX [Suspect]
     Active Substance: SECUKINUMAB
     Indication: Osteoarthritis

REACTIONS (3)
  - Muscle strain [Unknown]
  - Neck pain [Unknown]
  - Therapeutic product effect incomplete [Unknown]
